FAERS Safety Report 6781479-7 (Version None)
Quarter: 2010Q2

REPORT INFORMATION
  Report Type: 
  Country: None (occurrence: None)
  Receive Date: 20100617
  Receipt Date: 20100617
  Transmission Date: 20101027
  Serious: No
  Sender: FDA-Public Use
  Company Number: None

PATIENT
  Age: 58 Year
  Sex: Female
  Weight: 54.4316 kg

DRUGS (2)
  1. ELMIRON [Suspect]
     Indication: CYSTITIS INTERSTITIAL
     Dosage: 100 MG 2 X DAY
     Dates: start: 20100408, end: 20100520
  2. ELMIRON [Suspect]
     Indication: CYSTITIS INTERSTITIAL
     Dosage: 100 MG 2 X DAY
     Dates: start: 20100524, end: 20100529

REACTIONS (3)
  - EYELIDS PRURITUS [None]
  - HEADACHE [None]
  - TINNITUS [None]
